FAERS Safety Report 8301043 (Version 2)
Quarter: 2014Q3

REPORT INFORMATION
  Report Type: Spontaneous
  Country: US (occurrence: US)
  Receive Date: 20111219
  Receipt Date: 20140723
  Transmission Date: 20150326
  Serious: No
  Sender: FDA-Public Use
  Company Number: US-ASTRAZENECA-2010SE60422

PATIENT
  Age: 78 Year
  Sex: Female

DRUGS (1)
  1. CRESTOR [Suspect]
     Active Substance: ROSUVASTATIN CALCIUM
     Route: 048
     Dates: end: 20140713

REACTIONS (3)
  - Accident at work [Unknown]
  - Back injury [Unknown]
  - Drug dose omission [Unknown]

NARRATIVE: CASE EVENT DATE: 20101014
